FAERS Safety Report 6342097-8 (Version None)
Quarter: 2009Q3

REPORT INFORMATION
  Report Type: 
  Country: None (occurrence: None)
  Receive Date: 20090904
  Receipt Date: 20090904
  Transmission Date: 20100115
  Serious: Yes (Hospitalization)
  Sender: FDA-Public Use
  Company Number: None

PATIENT
  Sex: Male
  Weight: 112 kg

DRUGS (1)
  1. RITUXIMAB (MOAB C2B8 ANTI CD20, CHIMERIC) 690 MG [Suspect]
     Dosage: 825 MG
     Dates: end: 20090828

REACTIONS (6)
  - CEREBRAL VENTRICLE DILATATION [None]
  - CHILLS [None]
  - MENTAL STATUS CHANGES [None]
  - NECK PAIN [None]
  - PLATELET COUNT DECREASED [None]
  - SUBDURAL HAEMATOMA [None]
